FAERS Safety Report 5567318-0 (Version None)
Quarter: 2007Q4

REPORT INFORMATION
  Report Type: 
  Country: None (occurrence: None)
  Receive Date: 20071219
  Receipt Date: 20070501
  Transmission Date: 20080405
  Serious: No
  Sender: FDA-Public Use
  Company Number: US-ABBOTT-07P-163-0367482-00

PATIENT
  Sex: Female
  Weight: 68.1 kg

DRUGS (1)
  1. DILAUDID [Suspect]
     Indication: PAIN
     Route: 048
     Dates: start: 20070301, end: 20070301

REACTIONS (2)
  - PAIN [None]
  - SOMNOLENCE [None]
